FAERS Safety Report 5087068-7 (Version None)
Quarter: 2006Q3

REPORT INFORMATION
  Report Type: 
  Country: None (occurrence: None)
  Receive Date: 20060821
  Receipt Date: 20060301
  Transmission Date: 20061208
  Serious: Yes (Other)
  Sender: FDA-Public Use
  Company Number: 2006097794

PATIENT
  Age: 36 Year
  Sex: Female

DRUGS (9)
  1. NELFINAVIR MESILATE (NELFINAVIR MESILATE) [Suspect]
     Indication: HEPATITIS C
     Dates: start: 19980215, end: 19981115
  2. NELFINAVIR MESILATE (NELFINAVIR MESILATE) [Suspect]
     Indication: HIV INFECTION
     Dates: start: 19980215, end: 19981115
  3. ZIDOVUDINE [Concomitant]
  4. DIDANOSINE [Concomitant]
  5. INDINAVIR (INDINAVIR) [Concomitant]
  6. STAVUDINE [Concomitant]
  7. LAMIVUDINE [Concomitant]
  8. EFAVIRENZ [Concomitant]
  9. ABACAVIR [Concomitant]

REACTIONS (13)
  - ADRENAL INSUFFICIENCY [None]
  - AFFECTIVE DISORDER [None]
  - ALOPECIA [None]
  - ASTHENIA [None]
  - BLOOD LACTIC ACID DECREASED [None]
  - CONSTIPATION [None]
  - DIABETES MELLITUS [None]
  - DIARRHOEA [None]
  - HYPOTHYROIDISM [None]
  - INSULIN RESISTANCE [None]
  - LIPOATROPHY [None]
  - LIPODYSTROPHY ACQUIRED [None]
  - MITOCHONDRIAL TOXICITY [None]
